FAERS Safety Report 6122084-5 (Version None)
Quarter: 2009Q1

REPORT INFORMATION
  Report Type: 
  Country: None (occurrence: None)
  Receive Date: 20090316
  Receipt Date: 20090316
  Transmission Date: 20090719
  Serious: Yes (Life-Threatening)
  Sender: FDA-Public Use
  Company Number: None

PATIENT
  Age: 90 Year
  Sex: Male
  Weight: 52.4 kg

DRUGS (2)
  1. LORAZEPAM [Suspect]
     Indication: AGITATION
     Dosage: 0.5 MG ONCE PO
     Route: 048
     Dates: start: 20090310, end: 20090310
  2. LORAZEPAM [Suspect]
     Indication: AGITATION
     Dosage: 1 MG PRN IM
     Route: 030
     Dates: start: 20090310, end: 20090310

REACTIONS (7)
  - AGITATION [None]
  - LETHARGY [None]
  - NO THERAPEUTIC RESPONSE [None]
  - RESPIRATORY ACIDOSIS [None]
  - RESPIRATORY DEPRESSION [None]
  - SEDATION [None]
  - UNRESPONSIVE TO STIMULI [None]
